FAERS Safety Report 12514135 (Version 1)
Quarter: 2016Q2

REPORT INFORMATION
  Report Type: Spontaneous
  Country: US (occurrence: None)
  Receive Date: 20160629
  Receipt Date: 20160629
  Transmission Date: 20160815
  Serious: No
  Sender: FDA-Public Use
  Company Number: None

PATIENT
  Age: 51 Year
  Sex: Male

DRUGS (5)
  1. AFRIN [Concomitant]
     Active Substance: OXYMETAZOLINE
  2. ADVIL [Concomitant]
     Active Substance: IBUPROFEN
  3. VALIUM [Concomitant]
     Active Substance: DIAZEPAM
  4. HARVONI [Suspect]
     Active Substance: LEDIPASVIR\SOFOSBUVIR
     Indication: CHRONIC HEPATITIS C
     Dosage: 90-400MG QD PO
     Route: 048
     Dates: start: 20160607
  5. NICORETTE [Concomitant]
     Active Substance: NICOTINE

REACTIONS (2)
  - Diarrhoea [None]
  - Fatigue [None]

NARRATIVE: CASE EVENT DATE: 20160612
